FAERS Safety Report 9643116 (Version 2)
Quarter: 2013Q4

REPORT INFORMATION
  Report Type: Spontaneous
  Country: IT (occurrence: IT)
  Receive Date: 20131024
  Receipt Date: 20131101
  Transmission Date: 20140711
  Serious: Yes (Hospitalization)
  Sender: FDA-Public Use
  Company Number: IT-TEVA-438070ISR

PATIENT
  Age: 75 Year
  Sex: Female

DRUGS (4)
  1. SERTRALINA CLORIDRATO [Suspect]
     Indication: ANXIETY
     Dosage: 150 MILLIGRAM DAILY;
     Route: 048
     Dates: start: 20130625, end: 20130725
  2. GABAPENTIN [Concomitant]
     Indication: ANXIETY
  3. LORAZEPAM [Concomitant]
     Indication: ANXIETY
  4. PROMAZINA CLORIDRATO [Concomitant]
     Indication: ANXIETY

REACTIONS (3)
  - Psychomotor hyperactivity [Recovering/Resolving]
  - Dyspnoea [Recovering/Resolving]
  - Vertigo [Recovering/Resolving]
